FAERS Safety Report 12722349 (Version 1)
Quarter: 2016Q3

REPORT INFORMATION
  Report Type: Spontaneous
  Country: US (occurrence: US)
  Receive Date: 20160907
  Receipt Date: 20160907
  Transmission Date: 20161109
  Serious: Yes (Other)
  Sender: FDA-Public Use
  Company Number: US-KADMON PHARMACEUTICALS, LLC-KAD201609-003284

PATIENT
  Sex: Female

DRUGS (4)
  1. INTERFERON [Suspect]
     Active Substance: INTERFERON
  2. RIBAVIRIN. [Suspect]
     Active Substance: RIBAVIRIN
     Route: 048
  3. INTERFERON [Suspect]
     Active Substance: INTERFERON
  4. RIBAVIRIN. [Suspect]
     Active Substance: RIBAVIRIN
     Route: 048

REACTIONS (2)
  - Hepatic fibrosis [Unknown]
  - Viral load increased [Unknown]
